FAERS Safety Report 5072683-7 (Version None)
Quarter: 2006Q3

REPORT INFORMATION
  Report Type: 
  Country: None (occurrence: None)
  Receive Date: 20060807
  Receipt Date: 20060509
  Transmission Date: 20061208
  Serious: Yes (Congenital Anomaly)
  Sender: FDA-Public Use
  Company Number: US-ROCHE-447626

PATIENT
  Sex: Female
  Weight: 1.9 kg

DRUGS (6)
  1. COPEGUS [Suspect]
     Indication: DRUG USE FOR UNKNOWN INDICATION
     Dates: start: 20040515, end: 20041112
  2. PEG-INTERFERON ALFA NOS [Suspect]
     Indication: DRUG USE FOR UNKNOWN INDICATION
     Dates: start: 20040515, end: 20041112
  3. HUMALOG [Concomitant]
     Indication: DIABETES MELLITUS
     Dosage: 1 DOSE IN THE MORNING, 1 DOSE IN THE EVENING.
  4. HUMULIN [Concomitant]
     Indication: DIABETES MELLITUS
     Dosage: REPORTED AS HUMILIN.
     Dates: start: 19890615
  5. INSULIN [Concomitant]
     Indication: DIABETES MELLITUS
     Dates: start: 19890615
  6. PRENATAL VITAMINS [Concomitant]
     Indication: PREGNANCY
     Dates: start: 20041216

REACTIONS (4)
  - POLYHYDRAMNIOS [None]
  - PREMATURE LABOUR [None]
  - TORTICOLLIS [None]
  - UMBILICAL CORD VASCULAR DISORDER [None]
